FAERS Safety Report 7763109-0 (Version None)
Quarter: 2011Q3

REPORT INFORMATION
  Report Type: 
  Country: None (occurrence: None)
  Receive Date: 20110920
  Receipt Date: 20110905
  Transmission Date: 20111222
  Serious: Yes (Other)
  Sender: FDA-Public Use
  Company Number: PHHY2011BR80068

PATIENT
  Sex: Female

DRUGS (1)
  1. DIOVAN [Suspect]
     Indication: HYPERTENSION
     Dosage: 80 MG, (1 TABLET IN THE MORNING)
     Dates: end: 20110701

REACTIONS (3)
  - BREAST CANCER [None]
  - ANXIETY [None]
  - HYPERTENSION [None]
